FAERS Safety Report 9247560 (Version 1)
Quarter: 2013Q1

REPORT INFORMATION
  Report Type: Spontaneous
  Country: US (occurrence: None)
  Receive Date: 20121130
  Receipt Date: 20121130
  Transmission Date: 20140127
  Serious: Yes (Other)
  Sender: FDA-Public Use
  Company Number: FK201202704

PATIENT
  Sex: 0

DRUGS (4)
  1. FLUOROURACIL (MANUFACTURER UNKNOWN) (FLUOROURACIL) (FLUOROURACIL) [Suspect]
     Indication: PRODUCT USED FOR UNKNOWN INDICATION
     Route: 042
  2. ELOXATIN (OXALIPLATIN) [Concomitant]
  3. LEUCOVORINE (CALCIUM FOLINATE) [Concomitant]
  4. IRINOTECAN (IRINOTECAN (IRINOTECAN) [Concomitant]

REACTIONS (1)
  - Hypersensitivity [None]
